FAERS Safety Report 7797678-1 (Version None)
Quarter: 2011Q4

REPORT INFORMATION
  Report Type: 
  Country: None (occurrence: None)
  Receive Date: 20111005
  Receipt Date: 20111003
  Transmission Date: 20120403
  Serious: Yes (Death, Other)
  Sender: FDA-Public Use
  Company Number: PHHY2011CA85487

PATIENT
  Sex: Female

DRUGS (19)
  1. ASPIRIN [Concomitant]
     Dosage: 325 MG, QD
  2. FERROUS GLUCONATE [Concomitant]
     Dosage: 300 MG, BID
  3. CIPROFLOXACIN [Concomitant]
     Dosage: 500 MG, UNK
  4. CALCIUM CARBONATE [Concomitant]
     Dosage: 500 UKN, BID
  5. TD POLIO ADSORBED [Concomitant]
     Dosage: UNK UKN, UNK
     Dates: start: 20010701
  6. NITRODUR II [Concomitant]
     Dosage: 6 MG, QD
  7. VAXIGRIP [Concomitant]
     Dosage: UNK UKN, UNK
  8. DETROL [Concomitant]
     Dosage: 2 MG, QD
  9. INHIBACE ^ANDREU^ [Concomitant]
     Dosage: 1 MG, QD
  10. METAMUCIL-2 [Concomitant]
     Dosage: UNK UKN, BID
  11. ARICEPT [Concomitant]
     Dosage: 10 MG, QD
  12. ATENOLOL [Concomitant]
     Dosage: 50 MG, QD
  13. FLUVIRAL [Concomitant]
     Dosage: UNK UKN, UNK
     Dates: start: 20081030
  14. ZOLEDRONOC ACID [Suspect]
     Indication: OSTEOPOROSIS
     Dosage: UNK UKN, UNK
     Route: 042
     Dates: start: 20100818
  15. COLACE [Concomitant]
     Dosage: 100 MG, QD
  16. VITAMIN D [Concomitant]
     Dosage: 400 IU, BID
  17. INFLUENZA VACCINE [Concomitant]
     Dosage: UNK UKN, UNK
  18. LIPITOR [Concomitant]
     Dosage: 20 MG, QD
  19. PNEUMOVAX 23 [Concomitant]
     Dosage: UNK UKN, UNK
     Dates: start: 20090902

REACTIONS (4)
  - FALL [None]
  - HIP FRACTURE [None]
  - DEATH [None]
  - URINARY TRACT INFECTION [None]
